FAERS Safety Report 25348385 (Version 2)
Quarter: 2025Q2

REPORT INFORMATION
  Report Type: Spontaneous
  Country: NZ (occurrence: NZ)
  Receive Date: 20250522
  Receipt Date: 20250522
  Transmission Date: 20250716
  Serious: No
  Sender: ALEXION PHARMACEUTICALS
  Company Number: NZ-AstraZeneca-CH-00865284A

PATIENT
  Age: 76 Year

DRUGS (1)
  1. BUDESONIDE\FORMOTEROL FUMARATE DIHYDRATE [Suspect]
     Active Substance: BUDESONIDE\FORMOTEROL FUMARATE DIHYDRATE
     Indication: Chronic obstructive pulmonary disease
     Dosage: 2 DOSAGE FORM, BID
     Route: 065

REACTIONS (2)
  - Product packaging quantity issue [Recovered/Resolved]
  - Product taste abnormal [Recovered/Resolved]
